FAERS Safety Report 18574736 (Version 1)
Quarter: 2020Q4

REPORT INFORMATION
  Report Type: Spontaneous
  Country: FR (occurrence: FR)
  Receive Date: 20201203
  Receipt Date: 20201203
  Transmission Date: 20210114
  Serious: Yes (Hospitalization)
  Sender: FDA-Public Use
  Company Number: FR-TEVA-2020-FR-1854427

PATIENT
  Age: 72 Year
  Sex: Female

DRUGS (2)
  1. LEXOMIL 6 MG, COMPRIME QUADRISECABLE [Suspect]
     Active Substance: BROMAZEPAM
     Indication: INTENTIONAL OVERDOSE
     Dosage: 180 MG
     Route: 048
     Dates: start: 20201016, end: 20201016
  2. LAMOTRIGINE. [Suspect]
     Active Substance: LAMOTRIGINE
     Indication: INTENTIONAL OVERDOSE
     Dosage: 2000 MG
     Route: 048
     Dates: start: 20201016, end: 20201016

REACTIONS (3)
  - Poisoning deliberate [Recovered/Resolved]
  - Sedation [Recovered/Resolved]
  - Hypotension [Recovered/Resolved]

NARRATIVE: CASE EVENT DATE: 20201016
